FAERS Safety Report 7560202-2 (Version None)
Quarter: 2011Q2

REPORT INFORMATION
  Report Type: 
  Country: None (occurrence: None)
  Receive Date: 20110621
  Receipt Date: 20110613
  Transmission Date: 20111010
  Serious: Yes (Other)
  Sender: FDA-Public Use
  Company Number: B0726791A

PATIENT
  Age: 36 Year
  Sex: Female
  Weight: 41 kg

DRUGS (2)
  1. FOSFOMYCIN SODIUM [Concomitant]
     Route: 065
  2. CEFTAZIDIME SODIUM [Suspect]
     Indication: SEPSIS
     Dosage: 3G PER DAY
     Route: 042

REACTIONS (2)
  - DRUG EXPOSURE DURING PREGNANCY [None]
  - ABORTION INDUCED [None]
